FAERS Safety Report 25958704 (Version 2)
Quarter: 2025Q4

REPORT INFORMATION
  Report Type: Spontaneous
  Country: EU (occurrence: EU)
  Receive Date: 20251024
  Receipt Date: 20251110
  Transmission Date: 20260118
  Serious: Yes (Hospitalization, Other)
  Sender: BRISTOL-MYERS SQUIBB COMPANY
  Company Number: EU-BRISTOL-MYERS SQUIBB COMPANY-2025-144199

PATIENT
  Age: 50 Year
  Sex: Female
  Weight: 61 kg

DRUGS (3)
  1. ELIQUIS [Suspect]
     Active Substance: APIXABAN
     Indication: Deep vein thrombosis
     Route: 048
     Dates: start: 202304
  2. ELIQUIS [Suspect]
     Active Substance: APIXABAN
     Indication: Phlebitis
     Route: 048
     Dates: end: 20251010
  3. TERALITHE [Concomitant]
     Active Substance: LITHIUM CARBONATE
     Indication: Bipolar disorder
     Dosage: TERALITHE 400

REACTIONS (10)
  - Oral fungal infection [Unknown]
  - Piriformis syndrome [Unknown]
  - Alopecia [Unknown]
  - Bone pain [Unknown]
  - Weight decreased [Unknown]
  - Vulvovaginal mycotic infection [Unknown]
  - Pain in extremity [Unknown]
  - Inflammation [Unknown]
  - Drug intolerance [Unknown]
  - Chalazion [Unknown]

NARRATIVE: CASE EVENT DATE: 20240101
